FAERS Safety Report 6724181-X (Version None)
Quarter: 2010Q2

REPORT INFORMATION
  Report Type: 
  Country: None (occurrence: None)
  Receive Date: 20100513
  Receipt Date: 20100503
  Transmission Date: 20101027
  Serious: Yes (Hospitalization, Other)
  Sender: FDA-Public Use
  Company Number: US-ELI_LILLY_AND_COMPANY-US201003002768

PATIENT
  Sex: Male

DRUGS (2)
  1. BYETTA [Suspect]
     Dosage: 10 UG, 2/D
     Route: 058
  2. GLIMEPIRIDE [Concomitant]
     Indication: TYPE 2 DIABETES MELLITUS
     Dosage: 4 MG, 2/D

REACTIONS (8)
  - DECREASED APPETITE [None]
  - DIZZINESS [None]
  - FAILURE TO THRIVE [None]
  - NAUSEA [None]
  - THYROID CANCER [None]
  - THYROIDECTOMY [None]
  - VASCULAR GRAFT [None]
  - WEIGHT DECREASED [None]
